FAERS Safety Report 7096202-9 (Version None)
Quarter: 2010Q4

REPORT INFORMATION
  Report Type: 
  Country: None (occurrence: None)
  Receive Date: 20101111
  Receipt Date: 20101104
  Transmission Date: 20110411
  Serious: Yes (Other)
  Sender: FDA-Public Use
  Company Number: FR-ROCHE-739440

PATIENT
  Age: 50 Year
  Sex: Male

DRUGS (3)
  1. AVASTIN [Suspect]
     Route: 065
  2. AVASTIN [Suspect]
     Route: 065
  3. AVASTIN [Suspect]
     Route: 065

REACTIONS (2)
  - MUSCULOSKELETAL STIFFNESS [None]
  - MYALGIA [None]
